FAERS Safety Report 23277068 (Version 1)
Quarter: 2023Q4

REPORT INFORMATION
  Report Type: Spontaneous
  Country: US (occurrence: US)
  Receive Date: 20231208
  Receipt Date: 20231208
  Transmission Date: 20240109
  Serious: No
  Sender: FDA-Public Use
  Company Number: US-AMERICAN REGENT INC-2023001297

PATIENT

DRUGS (1)
  1. VENOFER [Suspect]
     Active Substance: IRON SUCROSE
     Indication: Product used for unknown indication
     Dosage: ^A DOSE^
     Route: 042
     Dates: start: 202305, end: 202305

REACTIONS (1)
  - Sweat discolouration [Unknown]

NARRATIVE: CASE EVENT DATE: 20230501
